FAERS Safety Report 6303302-7 (Version None)
Quarter: 2009Q3

REPORT INFORMATION
  Report Type: 
  Country: None (occurrence: None)
  Receive Date: 20090810
  Receipt Date: 20090610
  Transmission Date: 20100115
  Serious: No
  Sender: FDA-Public Use
  Company Number: A0791832A

PATIENT
  Age: 72 Year
  Sex: Male

DRUGS (5)
  1. PAXIL [Suspect]
     Indication: OBSESSIVE-COMPULSIVE DISORDER
     Route: 048
     Dates: start: 19990101
  2. WELLBUTRIN [Suspect]
     Indication: DEPRESSION
     Route: 048
  3. NIACIN [Suspect]
     Route: 048
  4. AMITRIPTYLINE [Suspect]
     Indication: SLEEP DISORDER
     Route: 048
  5. HYDROXYZINE [Suspect]
     Indication: SLEEP DISORDER
     Dosage: 100MG TWICE PER DAY
     Route: 048

REACTIONS (4)
  - ANXIETY [None]
  - LIBIDO DECREASED [None]
  - LIBIDO INCREASED [None]
  - OBSESSIVE-COMPULSIVE DISORDER [None]
